FAERS Safety Report 16004016 (Version 2)
Quarter: 2019Q1

REPORT INFORMATION
  Report Type: Spontaneous
  Country: DE (occurrence: DE)
  Receive Date: 20190225
  Receipt Date: 20190225
  Transmission Date: 20190418
  Serious: Yes (Other)
  Sender: FDA-Public Use
  Company Number: DE-ACCORD-108991

PATIENT
  Age: 37 Year
  Sex: Male

DRUGS (1)
  1. CLOZAPINE. [Suspect]
     Active Substance: CLOZAPINE
     Indication: PRODUCT USED FOR UNKNOWN INDICATION
     Dosage: ALSO RECEIVED AS 175 MG FROM 02-FEB-2018. ALSO RECEIVED 125 MG DOSE. 225 MG, 100, 300 MG.
     Route: 048
     Dates: start: 20180201

REACTIONS (4)
  - Myocarditis [Recovered/Resolved]
  - Pyrexia [Recovered/Resolved]
  - Pericarditis [Recovered/Resolved]
  - Tachycardia [Recovered/Resolved]

NARRATIVE: CASE EVENT DATE: 20180208
